FAERS Safety Report 10036283 (Version 4)
Quarter: 2014Q4

REPORT INFORMATION
  Report Type: Spontaneous
  Country: US (occurrence: US)
  Receive Date: 20140325
  Receipt Date: 20141009
  Transmission Date: 20150528
  Serious: Yes (Hospitalization, Other)
  Sender: FDA-Public Use
  Company Number: US-DSJP-DSU-2012-04864-1

PATIENT

DRUGS (10)
  1. BENICAR [Suspect]
     Active Substance: OLMESARTAN MEDOXOMIL
     Indication: HYPERTENSION
     Dosage: QD
     Route: 048
     Dates: end: 20120513
  2. ELIDEL [Concomitant]
     Active Substance: PIMECROLIMUS
     Indication: PRODUCT USED FOR UNKNOWN INDICATION
     Dosage: UNKNOWN TWICE DAILY    EVERY
     Route: 061
  3. BENICAR [Suspect]
     Active Substance: OLMESARTAN MEDOXOMIL
     Dosage: QD
     Route: 048
     Dates: start: 20120521, end: 20120521
  4. LIPITOR [Concomitant]
     Active Substance: ATORVASTATIN CALCIUM
     Indication: BLOOD CHOLESTEROL INCREASED
     Dosage: UNKNOWN     EVERY
  5. FLUTICASONE PROPIONATE. [Concomitant]
     Active Substance: FLUTICASONE PROPIONATE
     Indication: PRODUCT USED FOR UNKNOWN INDICATION
     Dosage: UNKNOWN ONE SPRAY TWICE DAILY    EVERY
     Route: 055
  6. BENICAR [Suspect]
     Active Substance: OLMESARTAN MEDOXOMIL
     Dosage: QD
     Route: 048
     Dates: start: 20120528, end: 20120528
  7. DEXLANSOPRAZOLE [Suspect]
     Active Substance: DEXLANSOPRAZOLE
     Indication: ABDOMINAL PAIN UPPER
     Dosage: UNKNOWN ONCE    EVERY
     Dates: start: 20120325, end: 20120325
  8. ZITHROMAX [Concomitant]
     Active Substance: AZITHROMYCIN DIHYDRATE
     Indication: PRODUCT USED FOR UNKNOWN INDICATION
     Dosage: EVERY
     Route: 048
  9. STERIOD USE (UNSPECIFIED IMMUNOSUPPRESSANT AGENTS) [INGREDIENTS UNKNOW [Suspect]
     Active Substance: UNSPECIFIED INGREDIENT
     Indication: DIARRHOEA
     Dosage: UNKNOWN     EVERY
     Dates: start: 2012, end: 201210
  10. CLOBETASOL PROPIONATE. [Concomitant]
     Active Substance: CLOBETASOL PROPIONATE
     Indication: PRODUCT USED FOR UNKNOWN INDICATION
     Dosage: UNKNOWN TWICE DAILY    EVERY
     Route: 061

REACTIONS (29)
  - Gastric ulcer [Recovered/Resolved]
  - Blood pressure increased [Unknown]
  - Actinic keratosis [Unknown]
  - Pelvic pain [Unknown]
  - Duodenitis haemorrhagic [Recovered/Resolved]
  - Neuritis [Unknown]
  - Colon adenoma [Unknown]
  - Gastric polyps [Unknown]
  - Palpitations [Unknown]
  - Haemorrhoids [Unknown]
  - Seborrhoeic keratosis [Unknown]
  - Anxiety [Unknown]
  - Duodenal ulcer [Recovered/Resolved]
  - Basal cell carcinoma [Not Recovered/Not Resolved]
  - Crohn^s disease [Unknown]
  - Liver function test abnormal [Unknown]
  - Hiatus hernia [Unknown]
  - Malabsorption [Recovering/Resolving]
  - Aortic arteriosclerosis [Unknown]
  - Alopecia [Unknown]
  - Sacroiliitis [Unknown]
  - Chronic gastritis [Not Recovered/Not Resolved]
  - Cytomegalovirus test positive [Unknown]
  - Hepatic cyst [Unknown]
  - Depressed mood [Unknown]
  - Hypotension [Recovered/Resolved]
  - Dermatitis [Unknown]
  - Arthritis [Unknown]
  - Melanocytic naevus [Unknown]

NARRATIVE: CASE EVENT DATE: 2001
